FAERS Safety Report 12800751 (Version 2)
Quarter: 2017Q1

REPORT INFORMATION
  Report Type: Spontaneous
  Country: US (occurrence: US)
  Receive Date: 20161001
  Receipt Date: 20170111
  Transmission Date: 20170428
  Serious: No
  Sender: FDA-Public Use
  Company Number: US-009507513-1609USA011407

PATIENT
  Age: 31 Year
  Sex: Female
  Weight: 45.81 kg

DRUGS (1)
  1. NEXPLANON [Suspect]
     Active Substance: ETONOGESTREL
     Indication: CONTRACEPTION
     Dosage: 1 ROD EVERY 3 YEARS
     Route: 059
     Dates: start: 20160729, end: 20160805

REACTIONS (1)
  - Emotional distress [Recovered/Resolved]

NARRATIVE: CASE EVENT DATE: 20160729
